FAERS Safety Report 9214019 (Version 1)
Quarter: 2013Q2

REPORT INFORMATION
  Report Type: Report from Study
  Country: KR (occurrence: KR)
  Receive Date: 20130405
  Receipt Date: 20130405
  Transmission Date: 20140414
  Serious: Yes (Other)
  Sender: FDA-Public Use
  Company Number: KR-NAPPMUNDI-GBR-2013-0013563

PATIENT
  Age: 69 Year
  Sex: Male

DRUGS (4)
  1. OXYCODONE [Suspect]
     Indication: CANCER PAIN
     Dosage: UNK
     Route: 048
     Dates: start: 20101111
  2. OXYCODONE [Suspect]
     Dosage: UNK
     Route: 048
     Dates: start: 20100506
  3. TRAMADOL HCL [Concomitant]
     Dosage: UNK
     Route: 065
     Dates: start: 20110118
  4. METOCLOPRAMIDE [Concomitant]
     Route: 065

REACTIONS (9)
  - Delirium [Unknown]
  - Respiratory depression [Unknown]
  - Asthenia [Unknown]
  - Nausea [Unknown]
  - Vomiting [Unknown]
  - Dry mouth [Unknown]
  - Somnolence [Unknown]
  - Hyperhidrosis [Unknown]
  - Dizziness [Unknown]
